FAERS Safety Report 8229200-X (Version None)
Quarter: 2012Q1

REPORT INFORMATION
  Report Type: 
  Country: None (occurrence: None)
  Receive Date: 20120322
  Receipt Date: 20120312
  Transmission Date: 20120608
  Serious: Yes (Hospitalization, Other)
  Sender: FDA-Public Use
  Company Number: JP-AMGEN-JPNCT2012012143

PATIENT
  Age: 72 Year
  Sex: Female
  Weight: 47 kg

DRUGS (6)
  1. ARIMIDEX [Concomitant]
     Indication: BREAST CANCER
     Route: 048
     Dates: start: 20110829
  2. DEXALTIN [Concomitant]
     Indication: MUCOSAL INFLAMMATION
     Dosage: ADEQUATE DOSE ARBITRARILY
     Route: 065
     Dates: start: 20111024
  3. KARY UNI [Concomitant]
     Indication: CATARACT
     Dosage: ADEQUATE DOSE
     Route: 047
  4. XGEVA [Suspect]
     Indication: BREAST CANCER
     Dosage: 120 MG, Q4WK
     Route: 058
     Dates: start: 20110829
  5. CEFAZOLIN SODIUM [Concomitant]
     Indication: DIARRHOEA
     Route: 048
     Dates: start: 20110926
  6. COMBEC [Concomitant]
     Indication: URETHRITIS
     Dosage: ADEQUATE DOSE
     Route: 065

REACTIONS (1)
  - SMALL INTESTINE CARCINOMA [None]
